FAERS Safety Report 5309111-X (Version None)
Quarter: 2007Q2

REPORT INFORMATION
  Report Type: 
  Country: None (occurrence: None)
  Receive Date: 20070413
  Receipt Date: 20070403
  Transmission Date: 20071010
  Serious: Yes (Hospitalization)
  Sender: FDA-Public Use
  Company Number: WSDF_00634

PATIENT
  Age: 17 Year
  Sex: Male
  Weight: 81.6 kg

DRUGS (1)
  1. WINRHO SDF [Suspect]
     Indication: IDIOPATHIC THROMBOCYTOPENIC PURPURA
     Dosage: 69.85 MCG/KG ONCE IV
     Route: 042
     Dates: start: 20061113, end: 20061113

REACTIONS (1)
  - HAEMOLYSIS [None]
